FAERS Safety Report 8091135-3 (Version None)
Quarter: 2012Q1

REPORT INFORMATION
  Report Type: 
  Country: None (occurrence: None)
  Receive Date: 20120130
  Receipt Date: 20120130
  Transmission Date: 20120608
  Serious: No
  Sender: FDA-Public Use
  Company Number: None

PATIENT
  Age: 53 Year
  Sex: Male
  Weight: 81.4 kg

DRUGS (1)
  1. AMOXICILLIN [Suspect]
     Dosage: 500 MG TID PO
     Route: 048
     Dates: start: 20110308, end: 20110315

REACTIONS (4)
  - CHEST PAIN [None]
  - COLD SWEAT [None]
  - RASH [None]
  - BLOOD GLUCOSE INCREASED [None]
